FAERS Safety Report 12571612 (Version 1)
Quarter: 2016Q3

REPORT INFORMATION
  Report Type: Report from Study
  Country: UA (occurrence: UA)
  Receive Date: 20160719
  Receipt Date: 20160719
  Transmission Date: 20161109
  Serious: Yes (Hospitalization)
  Sender: FDA-Public Use
  Company Number: UA-BAYER-2016-132931

PATIENT
  Age: 57 Year
  Sex: Male

DRUGS (5)
  1. MAGNESIUM [Concomitant]
     Active Substance: MAGNESIUM
  2. NEXAVAR [Suspect]
     Active Substance: SORAFENIB
     Indication: HEPATOCELLULAR CARCINOMA
     Dosage: 400 MG, QD
     Dates: start: 20160606, end: 20160624
  3. CEREBROLYCIN [Concomitant]
  4. CEFTRIAXON [Concomitant]
     Active Substance: CEFTRIAXONE
  5. SIBAZON [Concomitant]

REACTIONS (2)
  - Hypertension [Unknown]
  - Ischaemic stroke [Unknown]

NARRATIVE: CASE EVENT DATE: 20160624
